FAERS Safety Report 5205057-6 (Version None)
Quarter: 2007Q1

REPORT INFORMATION
  Report Type: 
  Country: None (occurrence: None)
  Receive Date: 20070110
  Receipt Date: 20061013
  Transmission Date: 20070707
  Serious: Yes (Hospitalization)
  Sender: FDA-Public Use
  Company Number: US-BRISTOL-MYERS SQUIBB COMPANY-13541180

PATIENT

DRUGS (2)
  1. ABILIFY [Suspect]
  2. TOPAMAX [Concomitant]

REACTIONS (1)
  - BLOOD POTASSIUM DECREASED [None]
